FAERS Safety Report 26048504 (Version 2)
Quarter: 2025Q4

REPORT INFORMATION
  Report Type: Report from Study
  Country: US (occurrence: US)
  Receive Date: 20251114
  Receipt Date: 20251210
  Transmission Date: 20260117
  Serious: Yes (Other)
  Sender: MARINUS PHARMACEUTICALS
  Company Number: US-MARINUS PHARMACEUTICALS, INC.-MAR2025000277

PATIENT

DRUGS (4)
  1. GANAXOLONE [Suspect]
     Active Substance: GANAXOLONE
     Dosage: 12 MILLILITER, TID
     Route: 048
  2. CLOBAZAM [Concomitant]
     Active Substance: CLOBAZAM
  3. KEPPRA [Concomitant]
     Active Substance: LEVETIRACETAM
  4. FELBATOL [Concomitant]
     Active Substance: FELBAMATE

REACTIONS (1)
  - Seizure [Unknown]

NARRATIVE: CASE EVENT DATE: 20251031
